FAERS Safety Report 12079808 (Version 1)
Quarter: 2016Q1

REPORT INFORMATION
  Report Type: Spontaneous
  Country: CN (occurrence: CN)
  Receive Date: 20160216
  Receipt Date: 20160216
  Transmission Date: 20160526
  Serious: Yes (Hospitalization)
  Sender: FDA-Public Use
  Company Number: CN-IPCA LABORATORIES LIMITED-IPC201602-000064

PATIENT
  Age: 48 Year
  Sex: Male

DRUGS (9)
  1. CARBAMAZEPINE. [Suspect]
     Active Substance: CARBAMAZEPINE
  2. MORPHINE [Suspect]
     Active Substance: MORPHINE
     Route: 033
  3. OXYCODONE/ACETAMINOPHEN [Concomitant]
     Active Substance: ACETAMINOPHEN\OXYCODONE HYDROCHLORIDE
  4. PREGABALIN. [Concomitant]
     Active Substance: PREGABALIN
  5. DULOXETINE. [Concomitant]
     Active Substance: DULOXETINE
  6. TRAMADOL. [Suspect]
     Active Substance: TRAMADOL
  7. GABAPENTIN. [Concomitant]
     Active Substance: GABAPENTIN
  8. MORPHINE [Suspect]
     Active Substance: MORPHINE
     Route: 048
  9. FENTANYL. [Concomitant]
     Active Substance: FENTANYL

REACTIONS (1)
  - Hyperaesthesia [Recovered/Resolved]
